FAERS Safety Report 4596955-5 (Version None)
Quarter: 2005Q1

REPORT INFORMATION
  Report Type: 
  Country: None (occurrence: None)
  Receive Date: 20050228
  Receipt Date: 20050210
  Transmission Date: 20050727
  Serious: Yes (Other)
  Sender: FDA-Public Use
  Company Number: DSA_25978_2005

PATIENT
  Sex: Male

DRUGS (2)
  1. VASOTEC [Suspect]
     Dosage: DF
  2. CARDURA [Suspect]
     Dosage: DF

REACTIONS (3)
  - ALANINE AMINOTRANSFERASE INCREASED [None]
  - ASPARTATE AMINOTRANSFERASE INCREASED [None]
  - PROTEIN URINE [None]
